FAERS Safety Report 5550788-1 (Version None)
Quarter: 2007Q4

REPORT INFORMATION
  Report Type: 
  Country: None (occurrence: None)
  Receive Date: 20071212
  Receipt Date: 20070509
  Transmission Date: 20080405
  Serious: No
  Sender: FDA-Public Use
  Company Number: US-AMGEN-KDL224179

PATIENT
  Sex: Female

DRUGS (1)
  1. ENBREL [Suspect]
     Indication: RHEUMATOID ARTHRITIS
     Route: 058
     Dates: start: 20061127

REACTIONS (10)
  - ABDOMINAL DISTENSION [None]
  - DIARRHOEA [None]
  - DYSPNOEA EXERTIONAL [None]
  - ERYTHEMA [None]
  - HAEMORRHAGE [None]
  - INJECTION SITE ERYTHEMA [None]
  - INJECTION SITE PAIN [None]
  - INJECTION SITE PRURITUS [None]
  - VOMITING [None]
  - WEIGHT INCREASED [None]
